FAERS Safety Report 6823975-X (Version None)
Quarter: 2010Q3

REPORT INFORMATION
  Report Type: 
  Country: None (occurrence: None)
  Receive Date: 20100708
  Receipt Date: 20060925
  Transmission Date: 20110219
  Serious: No
  Sender: FDA-Public Use
  Company Number: US-PFIZER INC-2006117600

PATIENT
  Sex: Female
  Weight: 53.07 kg

DRUGS (5)
  1. CHANTIX [Suspect]
     Indication: SMOKING CESSATION THERAPY
     Route: 048
     Dates: start: 20060826, end: 20060801
  2. PARNATE [Concomitant]
     Route: 048
  3. CLORAZEPATE DIPOTASSIUM [Concomitant]
     Route: 048
  4. LISINOPRIL [Concomitant]
     Indication: HYPERTENSION
     Route: 048
  5. DIURETICS [Concomitant]
     Route: 048

REACTIONS (1)
  - NAUSEA [None]
